FAERS Safety Report 20067016 (Version 9)
Quarter: 2022Q2

REPORT INFORMATION
  Report Type: Spontaneous
  Country: US (occurrence: US)
  Receive Date: 20211115
  Receipt Date: 20220628
  Transmission Date: 20220721
  Serious: Yes (Hospitalization)
  Sender: FDA-Public Use
  Company Number: US-INSMED, INC.-2021-09972-US

PATIENT
  Sex: Male

DRUGS (1)
  1. ARIKAYCE [Suspect]
     Active Substance: AMIKACIN
     Indication: Bronchiectasis
     Dosage: 590 MILLIGRAM, QD
     Route: 055
     Dates: start: 20210928, end: 20220614

REACTIONS (5)
  - Hospitalisation [Unknown]
  - Hospitalisation [Unknown]
  - Off label use [Unknown]
  - Product dose omission issue [Unknown]
  - Intentional dose omission [Unknown]
